FAERS Safety Report 14269156 (Version 4)
Quarter: 2018Q4

REPORT INFORMATION
  Report Type: Spontaneous
  Country: US (occurrence: US)
  Receive Date: 20171211
  Receipt Date: 20181214
  Transmission Date: 20190204
  Serious: Yes (Hospitalization, Other)
  Sender: FDA-Public Use
  Company Number: US-OTSUKA-2017_010107

PATIENT
  Age: 45 Year
  Sex: Male

DRUGS (11)
  1. ABILIFY [Suspect]
     Active Substance: ARIPIPRAZOLE
     Indication: POST-TRAUMATIC STRESS DISORDER
  2. ARIPIPRAZOLE. [Concomitant]
     Active Substance: ARIPIPRAZOLE
     Indication: PRODUCT USED FOR UNKNOWN INDICATION
     Dosage: UNK
     Route: 065
     Dates: start: 20161206, end: 201704
  3. ABILIFY [Suspect]
     Active Substance: ARIPIPRAZOLE
     Indication: INSOMNIA
  4. REXULTI [Suspect]
     Active Substance: BREXPIPRAZOLE
     Dosage: 2 MG, QD
     Route: 065
  5. REXULTI [Suspect]
     Active Substance: BREXPIPRAZOLE
     Dosage: 4 MG, QD
     Route: 065
  6. ABILIFY [Suspect]
     Active Substance: ARIPIPRAZOLE
     Indication: BIPOLAR DISORDER
     Dosage: 1 DF (20MG/40 MG), QD
     Route: 065
     Dates: start: 2001, end: 2015
  7. CYMBALTA [Suspect]
     Active Substance: DULOXETINE HYDROCHLORIDE
     Indication: PRODUCT USED FOR UNKNOWN INDICATION
     Dosage: UNK
     Route: 065
  8. ABILIFY [Suspect]
     Active Substance: ARIPIPRAZOLE
     Indication: MAJOR DEPRESSION
     Dosage: UNK (RESTARTED DOSE)
     Route: 065
  9. ABILIFY [Suspect]
     Active Substance: ARIPIPRAZOLE
     Indication: ANXIETY
  10. REXULTI [Suspect]
     Active Substance: BREXPIPRAZOLE
     Indication: PRODUCT USED FOR UNKNOWN INDICATION
     Dosage: 1 MG, QD
     Route: 065
  11. ABILIFY [Suspect]
     Active Substance: ARIPIPRAZOLE
     Indication: DYSKINESIA

REACTIONS (29)
  - Parkinson^s disease [Unknown]
  - Suicide attempt [Not Recovered/Not Resolved]
  - Joint injury [Unknown]
  - Decreased appetite [Unknown]
  - Condition aggravated [Recovering/Resolving]
  - Prescribed overdose [Unknown]
  - Economic problem [Unknown]
  - Trichotillomania [Not Recovered/Not Resolved]
  - Obsessive-compulsive disorder [Not Recovered/Not Resolved]
  - Gambling disorder [Recovering/Resolving]
  - Asthma [Unknown]
  - Tracheostomy tube removal [Unknown]
  - Mental disorder [Unknown]
  - Impulsive behaviour [Unknown]
  - Sexual dysfunction [Not Recovered/Not Resolved]
  - Dermatillomania [Not Recovered/Not Resolved]
  - Chronic respiratory failure [Unknown]
  - Restless legs syndrome [Unknown]
  - Compulsive sexual behaviour [Not Recovered/Not Resolved]
  - Hypersexuality [Unknown]
  - Suicidal ideation [Not Recovered/Not Resolved]
  - Arthralgia [Unknown]
  - Product use in unapproved indication [Unknown]
  - Weight increased [Unknown]
  - Limb injury [Unknown]
  - Pneumonia [Unknown]
  - Musculoskeletal pain [Unknown]
  - Compulsive shopping [Not Recovered/Not Resolved]
  - Divorced [Unknown]

NARRATIVE: CASE EVENT DATE: 2001
